FAERS Safety Report 6149210-6 (Version None)
Quarter: 2009Q2

REPORT INFORMATION
  Report Type: 
  Country: None (occurrence: None)
  Receive Date: 20090409
  Receipt Date: 20090331
  Transmission Date: 20091009
  Serious: Yes (Other)
  Sender: FDA-Public Use
  Company Number: HR-WYE-H08785409

PATIENT
  Age: 4 Year
  Sex: Male

DRUGS (4)
  1. CONTROLOC [Suspect]
     Indication: PROPHYLAXIS AGAINST GASTROINTESTINAL ULCER
     Route: 042
     Dates: start: 20090201, end: 20090201
  2. CYCLOSPORINE [Concomitant]
     Dosage: UNKNOWN
     Dates: start: 20080801
  3. MYCOPHENOLATE MOFETIL [Concomitant]
     Dosage: UNKNOWN
     Dates: start: 20080801
  4. PREDNISONE [Concomitant]
     Dosage: UNKNOWN
     Dates: start: 20080801

REACTIONS (1)
  - TREMOR [None]
